FAERS Safety Report 10637092 (Version 1)
Quarter: 2014Q4

REPORT INFORMATION
  Report Type: Spontaneous
  Country: US (occurrence: None)
  Receive Date: 20141204
  Receipt Date: 20141204
  Transmission Date: 20150529
  Serious: No
  Sender: FDA-Public Use
  Company Number: None

PATIENT
  Age: 46 Year
  Sex: Female
  Weight: 99.79 kg

DRUGS (2)
  1. MONTELUKAST [Suspect]
     Active Substance: MONTELUKAST SODIUM
     Indication: MULTIPLE ALLERGIES
     Dosage: TAKEN BY MOUTH
  2. MONTELUKAST [Suspect]
     Active Substance: MONTELUKAST SODIUM
     Indication: ASTHMA
     Dosage: TAKEN BY MOUTH

REACTIONS (6)
  - Aggression [None]
  - Paranoia [None]
  - Product substitution issue [None]
  - Fear [None]
  - Anger [None]
  - Depression [None]

NARRATIVE: CASE EVENT DATE: 20141202
